FAERS Safety Report 6849864-2 (Version None)
Quarter: 2010Q3

REPORT INFORMATION
  Report Type: 
  Country: None (occurrence: None)
  Receive Date: 20100716
  Receipt Date: 20071004
  Transmission Date: 20110219
  Serious: No
  Sender: FDA-Public Use
  Company Number: US-PFIZER INC-2007085072

PATIENT

DRUGS (4)
  1. CHANTIX [Interacting]
  2. GABAPENTIN [Interacting]
  3. OSTEO BI-FLEX [Suspect]
  4. AMBIEN [Suspect]

REACTIONS (3)
  - BURNING SENSATION [None]
  - DRUG INTERACTION [None]
  - ERYTHEMA [None]
